FAERS Safety Report 9734286 (Version 2)
Quarter: 2013Q4

REPORT INFORMATION
  Report Type: Report from Study
  Country: US (occurrence: US)
  Receive Date: 20131205
  Receipt Date: 20131212
  Transmission Date: 20140711
  Serious: Yes (Death)
  Sender: FDA-Public Use
  Company Number: US-ROCHE-1315438

PATIENT
  Age: 60 Year
  Sex: Female
  Weight: 52.5 kg

DRUGS (1)
  1. XELODA [Suspect]
     Indication: OVARIAN CANCER
     Dosage: 14 DAYS ON AND 7 DAYS OFF
     Route: 048
     Dates: start: 20131105, end: 20131122

REACTIONS (1)
  - Intestinal ischaemia [Fatal]
